FAERS Safety Report 8116599-8 (Version None)
Quarter: 2012Q1

REPORT INFORMATION
  Report Type: 
  Country: None (occurrence: None)
  Receive Date: 20120206
  Receipt Date: 20120126
  Transmission Date: 20120608
  Serious: Yes (Death, Hospitalization, Other)
  Sender: FDA-Public Use
  Company Number: US-AMGEN-KDL440020

PATIENT
  Age: 80 Year
  Sex: Male
  Weight: 51.85 kg

DRUGS (12)
  1. MEGACE [Concomitant]
     Dosage: 800 MG, QD
     Route: 048
     Dates: start: 20100907, end: 20101203
  2. VIAGRA [Concomitant]
     Dosage: UNK UNK, PRN
     Dates: start: 20101105
  3. NASONEX AQUEOUS [Concomitant]
     Dosage: UNK
     Dates: start: 20100115
  4. NPLATE [Suspect]
     Dosage: 0.5 MUG/KG, UNK
     Dates: end: 20110311
  5. VITAMIN D [Concomitant]
     Dosage: 400 IU, Q8H
     Route: 048
  6. CALCIUM D [Concomitant]
     Dosage: 1 UNK, QD
     Dates: start: 20050821
  7. CORTICOSTEROIDS [Concomitant]
     Dosage: UNK
     Dates: start: 19961029
  8. RITUXIMAB [Concomitant]
     Dosage: UNK
     Dates: start: 19961029
  9. NPLATE [Suspect]
     Indication: IDIOPATHIC THROMBOCYTOPENIC PURPURA
     Dosage: 15 MUG/KG, QWK
     Dates: start: 20091130, end: 20110311
  10. MULTI-VITAMINS [Concomitant]
     Dosage: 1 UNK, QD
     Dates: start: 20050812
  11. PREDNISONE [Concomitant]
     Dosage: 10 MG, BID
     Route: 048
     Dates: start: 20050807
  12. DOXYCYCLINE HYCLATE [Concomitant]
     Dosage: 100 MG, UNK
     Route: 048
     Dates: start: 20100507, end: 20100521

REACTIONS (18)
  - WEIGHT DECREASED [None]
  - ASTHENIA [None]
  - PNEUMONIA [None]
  - CHEST PAIN [None]
  - CARDIAC DISORDER [None]
  - RENAL FAILURE ACUTE [None]
  - VENTRICULAR TACHYCARDIA [None]
  - CHRONIC OBSTRUCTIVE PULMONARY DISEASE [None]
  - CONGESTIVE CARDIOMYOPATHY [None]
  - DIARRHOEA [None]
  - PULMONARY EMBOLISM [None]
  - DECREASED APPETITE [None]
  - CARDIOMYOPATHY [None]
  - EMBOLISM [None]
  - FATIGUE [None]
  - DIZZINESS [None]
  - INFLUENZA LIKE ILLNESS [None]
  - UPPER RESPIRATORY TRACT INFECTION [None]
